FAERS Safety Report 7441208-0 (Version None)
Quarter: 2011Q2

REPORT INFORMATION
  Report Type: 
  Country: None (occurrence: None)
  Receive Date: 20110428
  Receipt Date: 20110419
  Transmission Date: 20111010
  Serious: No
  Sender: FDA-Public Use
  Company Number: US-BIOGENIDEC-2011BI000409

PATIENT
  Sex: Female

DRUGS (2)
  1. TYSABRI [Suspect]
     Indication: MULTIPLE SCLEROSIS
     Route: 042
     Dates: start: 20101119
  2. AVONEX [Concomitant]
     Route: 030
     Dates: start: 20091001

REACTIONS (8)
  - DRUG INEFFECTIVE [None]
  - CONTUSION [None]
  - FATIGUE [None]
  - FACIAL BONES FRACTURE [None]
  - SLUGGISHNESS [None]
  - HEADACHE [None]
  - FALL [None]
  - ASTHENIA [None]
